FAERS Safety Report 15991582 (Version 1)
Quarter: 2019Q1

REPORT INFORMATION
  Report Type: Spontaneous
  Country: SE (occurrence: SE)
  Receive Date: 20190221
  Receipt Date: 20190221
  Transmission Date: 20190418
  Serious: Yes (Other)
  Sender: FDA-Public Use
  Company Number: SE-MYLANLABS-2019M1015761

PATIENT
  Age: 63 Year
  Sex: Male

DRUGS (5)
  1. BROMOCRIPTINE [Suspect]
     Active Substance: BROMOCRIPTINE
     Indication: PARKINSON^S DISEASE
     Dosage: 10 MILLIGRAM, QD
  2. BROMOCRIPTINE [Suspect]
     Active Substance: BROMOCRIPTINE
     Dosage: 50 MILLIGRAM, QD
     Dates: start: 1980
  3. BROMOCRIPTINE [Suspect]
     Active Substance: BROMOCRIPTINE
     Dosage: UNK(DOSE INCREASED)
     Dates: start: 1984
  4. ORPHENADRINE [Suspect]
     Active Substance: ORPHENADRINE
     Indication: PARKINSON^S DISEASE
     Dosage: UNK
  5. DOPAMINE HYDROCHLORIDE. [Suspect]
     Active Substance: DOPAMINE HYDROCHLORIDE
     Indication: PARKINSON^S DISEASE
     Dosage: UNK
     Dates: start: 1970

REACTIONS (3)
  - Lung disorder [Unknown]
  - Dyspnoea [Recovered/Resolved]
  - Cough [Recovered/Resolved]

NARRATIVE: CASE EVENT DATE: 1982
